FAERS Safety Report 11318544 (Version 2)
Quarter: 2017Q1

REPORT INFORMATION
  Report Type: Report from Study
  Country: CA (occurrence: CA)
  Receive Date: 20150729
  Receipt Date: 20170221
  Transmission Date: 20170428
  Serious: Yes (Other)
  Sender: FDA-Public Use
  Company Number: CA-ROCHE-1610136

PATIENT
  Age: 67 Year
  Sex: Male
  Weight: 127 kg

DRUGS (12)
  1. MINOCYCLINE [Concomitant]
     Active Substance: MINOCYCLINE\MINOCYCLINE HYDROCHLORIDE
  2. RITUXAN [Suspect]
     Active Substance: RITUXIMAB
     Indication: WARM TYPE HAEMOLYTIC ANAEMIA
     Route: 042
     Dates: start: 20150714
  3. FOLIC ACID. [Concomitant]
     Active Substance: FOLIC ACID
  4. RITUXAN [Suspect]
     Active Substance: RITUXIMAB
     Indication: THERAPY NON-RESPONDER
  5. HUMALOG [Concomitant]
     Active Substance: INSULIN LISPRO
  6. RAMIPRIL. [Concomitant]
     Active Substance: RAMIPRIL
  7. RANITIDINE. [Concomitant]
     Active Substance: RANITIDINE
  8. DILTIAZEM. [Concomitant]
     Active Substance: DILTIAZEM
  9. VITAMIN B12 [Concomitant]
     Active Substance: CYANOCOBALAMIN
  10. HUMULIN NOS [Concomitant]
     Active Substance: INSULIN HUMAN
  11. HYDROCHLOROTHIAZIDE. [Concomitant]
     Active Substance: HYDROCHLOROTHIAZIDE
  12. METOPROLOL. [Concomitant]
     Active Substance: METOPROLOL

REACTIONS (5)
  - Fatigue [Not Recovered/Not Resolved]
  - Eye pain [Not Recovered/Not Resolved]
  - Off label use [Unknown]
  - Ocular discomfort [Not Recovered/Not Resolved]
  - Eye disorder [Recovering/Resolving]

NARRATIVE: CASE EVENT DATE: 20150714
